FAERS Safety Report 12584085 (Version 2)
Quarter: 2016Q3

REPORT INFORMATION
  Report Type: Spontaneous
  Country: DE (occurrence: DE)
  Receive Date: 20160722
  Receipt Date: 20160728
  Transmission Date: 20161109
  Serious: Yes (Other)
  Sender: FDA-Public Use
  Company Number: DE-BAYER-2016-138776

PATIENT
  Sex: Female

DRUGS (2)
  1. CIPROFLOXACIN. [Suspect]
     Active Substance: CIPROFLOXACIN
     Indication: PYELONEPHRITIS
  2. CIPROFLOXACIN. [Suspect]
     Active Substance: CIPROFLOXACIN
     Indication: URINARY TRACT INFLAMMATION
     Dosage: UNK
     Dates: start: 201507

REACTIONS (18)
  - Malaise [Recovering/Resolving]
  - Chest discomfort [Recovering/Resolving]
  - Muscle atrophy [Recovering/Resolving]
  - Alopecia [Recovering/Resolving]
  - Oropharyngeal pain [Recovering/Resolving]
  - Immunodeficiency [Recovering/Resolving]
  - Bronchitis [Recovering/Resolving]
  - Onychoclasis [Recovering/Resolving]
  - Weight decreased [Recovering/Resolving]
  - Headache [Recovering/Resolving]
  - Tendon disorder [Not Recovered/Not Resolved]
  - Gastrointestinal fungal infection [Recovering/Resolving]
  - Cognitive disorder [Recovering/Resolving]
  - Mental disorder [Recovering/Resolving]
  - Arthropathy [Not Recovered/Not Resolved]
  - Fatigue [Recovering/Resolving]
  - Vulvovaginal candidiasis [Recovering/Resolving]
  - Bone disorder [Not Recovered/Not Resolved]
